FAERS Safety Report 7264832-7 (Version None)
Quarter: 2011Q1

REPORT INFORMATION
  Report Type: 
  Country: None (occurrence: None)
  Receive Date: 20110131
  Receipt Date: 20110124
  Transmission Date: 20110831
  Serious: Yes (Hospitalization)
  Sender: FDA-Public Use
  Company Number: FR-BRISTOL-MYERS SQUIBB COMPANY-15511363

PATIENT
  Age: 40 Year
  Sex: Female

DRUGS (7)
  1. KIVEXA [Suspect]
     Indication: HIV INFECTION
     Dosage: 1 DF=600/300MG
     Route: 048
  2. VIREAD [Suspect]
     Indication: HEPATITIS B
     Route: 048
  3. DECAPEPTYL [Concomitant]
     Route: 030
  4. REYATAZ [Suspect]
     Indication: HIV INFECTION
     Route: 048
     Dates: end: 20100928
  5. NORVIR [Suspect]
     Indication: HIV INFECTION
     Route: 048
  6. OESTRODOSE [Concomitant]
     Route: 061
  7. ANDROCUR [Concomitant]
     Route: 048

REACTIONS (2)
  - NEPHROLITHIASIS [None]
  - URINARY TRACT INFECTION [None]
